FAERS Safety Report 6770349-6 (Version None)
Quarter: 2010Q2

REPORT INFORMATION
  Report Type: 
  Country: None (occurrence: None)
  Receive Date: 20100615
  Receipt Date: 20100602
  Transmission Date: 20101027
  Serious: Yes (Hospitalization)
  Sender: FDA-Public Use
  Company Number: ES-ELI_LILLY_AND_COMPANY-ES201006001508

PATIENT
  Sex: Female
  Weight: 51 kg

DRUGS (4)
  1. FORTEO [Suspect]
     Indication: OSTEOPOROSIS
     Dosage: 20 UG, DAILY (1/D)
     Route: 058
     Dates: start: 20090826, end: 20100529
  2. METHOTREXATE [Concomitant]
     Indication: ARTHRITIS
     Dosage: UNK, WEEKLY (1/W)
     Route: 058
     Dates: end: 20100529
  3. HIERRO [Concomitant]
     Indication: ANAEMIA
     Dosage: UNK, UNKNOWN
     Route: 065
  4. ANTIHYPERTENSIVES [Concomitant]

REACTIONS (3)
  - DECREASED APPETITE [None]
  - FLUID INTAKE REDUCED [None]
  - WEIGHT DECREASED [None]
